FAERS Safety Report 11051141 (Version 1)
Quarter: 2015Q2

REPORT INFORMATION
  Report Type: Spontaneous
  Country: US (occurrence: US)
  Receive Date: 20150421
  Receipt Date: 20150421
  Transmission Date: 20150821
  Serious: Yes (Hospitalization)
  Sender: FDA-Public Use
  Company Number: US-PFIZER INC-2015134821

PATIENT

DRUGS (11)
  1. TENORMIN [Suspect]
     Active Substance: ATENOLOL
     Dosage: 100 MG, UNK
     Route: 048
  2. BRILINTA [Suspect]
     Active Substance: TICAGRELOR
     Indication: CORONARY ARTERY DISEASE
     Dosage: 90 MG, UNK
     Route: 048
     Dates: end: 20150411
  3. NITROSTAT [Concomitant]
     Active Substance: NITROGLYCERIN
     Dosage: AS REQUIRED
  4. METFORMIN [Concomitant]
     Active Substance: METFORMIN HYDROCHLORIDE
  5. ASPIRIN. [Concomitant]
     Active Substance: ASPIRIN
     Dosage: 81 MG, UNK
  6. CATAPRES [Concomitant]
     Active Substance: CLONIDINE HYDROCHLORIDE
     Dosage: 0.1 MG, UNK
  7. IMADURE [Concomitant]
     Dosage: 30 MG, UNK
  8. AMARYL [Concomitant]
     Active Substance: GLIMEPIRIDE
     Dosage: UNK
  9. LISINOPRIL. [Suspect]
     Active Substance: LISINOPRIL
     Dosage: 30 MG, UNK
     Route: 048
  10. NORVASC [Concomitant]
     Active Substance: AMLODIPINE BESYLATE
     Dosage: 10 MG, UNK
  11. CATAPRES [Concomitant]
     Active Substance: CLONIDINE HYDROCHLORIDE
     Dosage: 0.2 MG, UNK

REACTIONS (3)
  - Chest pain [Unknown]
  - Product use issue [Unknown]
  - Gastrointestinal haemorrhage [Unknown]
